FAERS Safety Report 9549920 (Version 1)
Quarter: 2013Q3

REPORT INFORMATION
  Report Type: Report from Study
  Country: IN (occurrence: IN)
  Receive Date: 20130924
  Receipt Date: 20130924
  Transmission Date: 20140515
  Serious: Yes (Other)
  Sender: FDA-Public Use
  Company Number: IN-MYLANLABS-2013S1020773

PATIENT
  Age: 33 Year
  Sex: Female

DRUGS (3)
  1. MYCOPHENOLATE MOFETIL [Suspect]
     Indication: IMMUNOSUPPRESSANT DRUG THERAPY
     Route: 065
  2. PREDNISOLONE [Concomitant]
     Indication: IMMUNOSUPPRESSANT DRUG THERAPY
     Route: 065
  3. TACROLIMUS [Concomitant]
     Indication: IMMUNOSUPPRESSANT DRUG THERAPY
     Route: 065

REACTIONS (3)
  - Colitis [Recovering/Resolving]
  - Leukopenia [Unknown]
  - Toxicity to various agents [Unknown]
